FAERS Safety Report 6284401-5 (Version None)
Quarter: 2009Q3

REPORT INFORMATION
  Report Type: 
  Country: None (occurrence: None)
  Receive Date: 20090727
  Receipt Date: 20090715
  Transmission Date: 20100115
  Serious: Yes (Hospitalization, Other)
  Sender: FDA-Public Use
  Company Number: US-ROCHE-634018

PATIENT
  Sex: Female

DRUGS (7)
  1. PEG-INTERFERON A-2A (RO 25-8310) [Suspect]
     Indication: HEPATITIS C
     Dosage: PATIENT COMPLETED 48 WEEKS OF THERAPY, FORM: PRE-FILLED SYRINGE
     Route: 058
     Dates: start: 20080609, end: 20090511
  2. RIBAVIRIN [Suspect]
     Indication: HEPATITIS C
     Dosage: DOSE: 2 DOSE FORMS IN AM AND 3 DOSE FORMS IN PM
     Route: 048
     Dates: start: 20080623, end: 20090627
  3. RIBAVIRIN (NON-ROCHE) [Suspect]
     Indication: HEPATITIS C
     Dosage: PATIENT COMPLETED 48 WEEKS OF THERAPY
     Route: 065
     Dates: start: 20080609, end: 20090511
  4. VASOTEC [Concomitant]
     Indication: BLOOD PRESSURE
     Route: 048
  5. TOPROL-XL [Concomitant]
     Indication: BLOOD PRESSURE
     Route: 048
  6. EFFEXOR [Concomitant]
     Indication: DEPRESSION
     Dosage: DRUG: EFFEXOR XL, DOSE: TWO DOSE FORM
     Route: 048
  7. VALIUM [Concomitant]
     Indication: ANXIETY
     Dosage: DOSE: THREE DOSE FORM, PRN
     Route: 048

REACTIONS (18)
  - ABDOMINAL DISCOMFORT [None]
  - AGITATION [None]
  - ANAEMIA [None]
  - BACK PAIN [None]
  - CHEST PAIN [None]
  - CONFUSIONAL STATE [None]
  - DISABILITY [None]
  - FATIGUE [None]
  - HEADACHE [None]
  - HOSPITALISATION [None]
  - HYPOTHYROIDISM [None]
  - INFECTED SKIN ULCER [None]
  - INSOMNIA [None]
  - NAUSEA [None]
  - SKIN LESION [None]
  - SKIN ULCER [None]
  - ULCER [None]
  - VIRAL INFECTION [None]
